FAERS Safety Report 20999414 (Version 1)
Quarter: 2022Q2

REPORT INFORMATION
  Report Type: Spontaneous
  Country: CA (occurrence: CA)
  Receive Date: 20220623
  Receipt Date: 20220623
  Transmission Date: 20220720
  Serious: Yes (Other)
  Sender: FDA-Public Use
  Company Number: CA-ELI_LILLY_AND_COMPANY-CA202206006695

PATIENT
  Age: 34 Year
  Sex: Female
  Weight: 81 kg

DRUGS (5)
  1. DULOXETINE HYDROCHLORIDE [Suspect]
     Active Substance: DULOXETINE HYDROCHLORIDE
     Indication: Product used for unknown indication
     Dosage: UNK, UNKNOWN
     Route: 065
  2. BENZOYL PEROXIDE\CLINDAMYCIN [Suspect]
     Active Substance: BENZOYL PEROXIDE\CLINDAMYCIN
     Indication: Product used for unknown indication
     Dosage: 1 DOSAGE FORM, DAILY
     Route: 061
  3. BUPROPION [Suspect]
     Active Substance: BUPROPION
     Indication: Product used for unknown indication
     Dosage: 300 MG, DAILY
     Route: 065
  4. ERYTHROMYCIN [Suspect]
     Active Substance: ERYTHROMYCIN
     Indication: Acne
     Dosage: 1 DOSAGE FORM, DAILY
     Route: 061
  5. QUETIAPINE [Suspect]
     Active Substance: QUETIAPINE
     Indication: Product used for unknown indication
     Dosage: 100 MG, DAILY
     Route: 048

REACTIONS (2)
  - Abortion spontaneous [Unknown]
  - Maternal exposure during pregnancy [Recovered/Resolved]
